FAERS Safety Report 4358525-3 (Version None)
Quarter: 2004Q2

REPORT INFORMATION
  Report Type: 
  Country: None (occurrence: None)
  Receive Date: 20040514
  Receipt Date: 20011218
  Transmission Date: 20050107
  Serious: Yes (Death, Hospitalization)
  Sender: FDA-Public Use
  Company Number: 715764 SCHOEPF

PATIENT
  Age: 17 Month
  Sex: Female
  Weight: 9 kg

DRUGS (6)
  1. FORTUM [Suspect]
     Dosage: 1INJ THREE TIMES PER DAY
     Route: 042
     Dates: start: 20000426, end: 20000426
  2. KEPINOL [Suspect]
     Indication: INFECTION PROPHYLAXIS
     Dosage: 20MG TWICE PER DAY
     Route: 048
     Dates: end: 20000426
  3. CODIPRONT [Suspect]
     Indication: COUGH
     Route: 048
     Dates: start: 20000423, end: 20000424
  4. CHLORALHYDRAT [Suspect]
     Indication: SEDATION
     Route: 054
     Dates: start: 20000426, end: 20000426
  5. PROMAZINE HCL [Suspect]
     Indication: SEDATION
     Route: 048
     Dates: start: 20000426, end: 20000426
  6. MULTIPLE MEDICATION [Concomitant]
     Route: 065

REACTIONS (11)
  - BLISTER [None]
  - CONJUNCTIVITIS [None]
  - DEATH [None]
  - DERMATITIS EXFOLIATIVE [None]
  - ERYTHEMA [None]
  - GENITAL ULCERATION [None]
  - LABORATORY TEST ABNORMAL [None]
  - MOUTH ULCERATION [None]
  - RASH MACULAR [None]
  - STEVENS-JOHNSON SYNDROME [None]
  - TOXIC EPIDERMAL NECROLYSIS [None]
